FAERS Safety Report 7553442-X (Version None)
Quarter: 2011Q2

REPORT INFORMATION
  Report Type: 
  Country: None (occurrence: None)
  Receive Date: 20110617
  Receipt Date: 20110603
  Transmission Date: 20111010
  Serious: Yes (Hospitalization, Other)
  Sender: FDA-Public Use
  Company Number: US-RANBAXY-2011RR-41560

PATIENT
  Sex: Male

DRUGS (4)
  1. CIPROFLOXACIN [Suspect]
     Dosage: UNK
     Route: 048
     Dates: start: 20050827
  2. CIPROFLOXACIN [Suspect]
     Indication: INFECTION
     Dosage: UNK
     Route: 048
     Dates: start: 20010616
  3. LEVAQUIN [Suspect]
     Indication: URINARY TRACT INFECTION
     Dosage: UNK
     Route: 048
     Dates: start: 20010508, end: 20070601
  4. CIPROFLOXACIN [Suspect]
     Dosage: UNK
     Route: 048
     Dates: start: 20080617

REACTIONS (4)
  - TENDONITIS [None]
  - ROTATOR CUFF SYNDROME [None]
  - MUSCLE RUPTURE [None]
  - EPICONDYLITIS [None]
